FAERS Safety Report 8257671-1 (Version None)
Quarter: 2012Q2

REPORT INFORMATION
  Report Type: 
  Country: None (occurrence: None)
  Receive Date: 20120403
  Receipt Date: 20120402
  Transmission Date: 20120825
  Serious: Yes (Death, Hospitalization, Disabling)
  Sender: FDA-Public Use
  Company Number: CA-ROCHE-1055641

PATIENT
  Age: 81 Year
  Sex: Female

DRUGS (7)
  1. ATENOLOL [Concomitant]
     Route: 065
  2. LIPITOR [Concomitant]
     Route: 065
  3. LUCENTIS [Suspect]
     Indication: PRODUCT USED FOR UNKNOWN INDICATION
     Route: 031
  4. AVASTIN [Suspect]
     Indication: PRODUCT USED FOR UNKNOWN INDICATION
     Route: 031
  5. ALENDRONATE SODIUM [Concomitant]
     Route: 065
  6. PLAVIX [Concomitant]
     Route: 065
  7. VITALUX [Concomitant]
     Route: 065

REACTIONS (2)
  - CEREBROVASCULAR ACCIDENT [None]
  - SPEECH DISORDER [None]
